FAERS Safety Report 6985206-X (Version None)
Quarter: 2010Q3

REPORT INFORMATION
  Report Type: 
  Country: None (occurrence: None)
  Receive Date: 20100915
  Receipt Date: 20100910
  Transmission Date: 20110219
  Serious: No
  Sender: FDA-Public Use
  Company Number: HK-ROCHE-726274

PATIENT
  Sex: Female
  Weight: 54.4 kg

DRUGS (5)
  1. ACTEMRA [Suspect]
     Indication: RHEUMATOID ARTHRITIS
     Route: 042
     Dates: start: 20100813, end: 20100910
  2. METHOTREXATE [Concomitant]
     Route: 048
     Dates: start: 20060601, end: 20100910
  3. FOLIC ACID [Concomitant]
     Route: 048
     Dates: start: 20060601, end: 20100910
  4. DICLOFENAC [Concomitant]
     Route: 048
  5. FAMOTIDINE [Concomitant]
     Route: 054

REACTIONS (1)
  - CHILLS [None]
